FAERS Safety Report 8432444-5 (Version None)
Quarter: 2012Q2

REPORT INFORMATION
  Report Type: 
  Country: None (occurrence: None)
  Receive Date: 20120613
  Receipt Date: 20120604
  Transmission Date: 20120825
  Serious: Yes (Hospitalization)
  Sender: FDA-Public Use
  Company Number: US-VERTEX PHARMACEUTICALS INC.-AE-2012-008433

PATIENT
  Sex: Male
  Weight: 108.8 kg

DRUGS (22)
  1. OXYCODONE HCL [Concomitant]
     Route: 048
  2. BONIVA [Concomitant]
     Route: 048
  3. LASIX [Concomitant]
     Route: 048
  4. XIFAXAN [Concomitant]
     Route: 048
  5. MORPHINE SULFATE [Concomitant]
     Route: 048
  6. RIBAVIRIN [Concomitant]
     Indication: HEPATITIS C
     Route: 048
  7. METOCLOPRAMIDE [Concomitant]
     Route: 048
  8. INCIVEK [Suspect]
     Indication: HEPATITIS C
     Route: 048
     Dates: start: 20120512
  9. MAGNESIUM [Concomitant]
     Route: 048
  10. PEGASYS [Concomitant]
     Indication: HEPATITIS C
     Route: 058
  11. ALLOPURINOL [Concomitant]
     Route: 048
  12. CYMBALTA [Concomitant]
     Route: 048
  13. SPIRONOLACTONE [Concomitant]
     Route: 048
  14. FOLIC ACID [Concomitant]
     Route: 048
  15. MIACALCIN [Concomitant]
  16. WELLBUTRIN [Concomitant]
     Route: 048
  17. POTASSIUM ACETATE [Concomitant]
     Route: 048
  18. NEURONTIN [Concomitant]
     Route: 048
  19. ACIPHEX [Concomitant]
     Route: 048
  20. M.V.I. [Concomitant]
     Route: 048
  21. NADOLOL [Concomitant]
     Route: 048
  22. COMBIVENT [Concomitant]

REACTIONS (1)
  - ENCEPHALOPATHY [None]
